FAERS Safety Report 12396863 (Version 1)
Quarter: 2016Q2

REPORT INFORMATION
  Report Type: Spontaneous
  Country: US (occurrence: None)
  Receive Date: 20160523
  Receipt Date: 20160523
  Transmission Date: 20160815
  Serious: Yes (Hospitalization)
  Sender: FDA-Public Use
  Company Number: None

PATIENT
  Age: 27 Year
  Sex: Female

DRUGS (1)
  1. COPAXONE [Suspect]
     Active Substance: GLATIRAMER ACETATE
     Indication: PRODUCT USED FOR UNKNOWN INDICATION
     Route: 058
     Dates: start: 20160223

REACTIONS (8)
  - Nausea [None]
  - Dizziness [None]
  - Multiple sclerosis relapse [None]
  - Bronchitis [None]
  - Memory impairment [None]
  - Vertigo [None]
  - Vomiting [None]
  - Drug dose omission [None]

NARRATIVE: CASE EVENT DATE: 20160508
